FAERS Safety Report 15792375 (Version 1)
Quarter: 2019Q1

REPORT INFORMATION
  Report Type: Spontaneous
  Country: ES (occurrence: ES)
  Receive Date: 20190107
  Receipt Date: 20190107
  Transmission Date: 20190417
  Serious: Yes (Hospitalization)
  Sender: FDA-Public Use
  Company Number: ES-TEVA-2019-ES-995536

PATIENT
  Age: 48 Year
  Sex: Male

DRUGS (3)
  1. SEPTRIN 80 MG/400 MG COMPRIMIDOS , 100 COMPRIMIDOS [Interacting]
     Active Substance: SULFAMETHOXAZOLE\TRIMETHOPRIM
     Route: 048
     Dates: start: 20180831, end: 20181109
  2. TACROLIMUS (2694A) [Suspect]
     Active Substance: TACROLIMUS
     Route: 048
     Dates: start: 20180903
  3. VALCYTE [Interacting]
     Active Substance: VALGANCICLOVIR HYDROCHLORIDE
     Route: 048
     Dates: start: 20180831, end: 20181109

REACTIONS (3)
  - Leukopenia [Recovered/Resolved]
  - Drug interaction [Unknown]
  - Neutropenia [Recovered/Resolved]

NARRATIVE: CASE EVENT DATE: 20181107
